FAERS Safety Report 13365618 (Version 3)
Quarter: 2017Q2

REPORT INFORMATION
  Report Type: Spontaneous
  Country: US (occurrence: US)
  Receive Date: 20170323
  Receipt Date: 20170419
  Transmission Date: 20170830
  Serious: Yes (Other)
  Sender: FDA-Public Use
  Company Number: US-009507513-1703USA009974

PATIENT
  Age: 38 Year
  Sex: Female

DRUGS (2)
  1. NEXPLANON [Suspect]
     Active Substance: ETONOGESTREL
     Dosage: UNK
     Route: 059
     Dates: start: 2014, end: 20170306
  2. NEXPLANON [Suspect]
     Active Substance: ETONOGESTREL
     Indication: CONTRACEPTION
     Dosage: UNK
     Route: 059
     Dates: start: 20170306

REACTIONS (2)
  - Implant site thrombosis [Recovering/Resolving]
  - Implant site infection [Recovering/Resolving]

NARRATIVE: CASE EVENT DATE: 20170310
